FAERS Safety Report 4695661-6 (Version None)
Quarter: 2005Q2

REPORT INFORMATION
  Report Type: 
  Country: None (occurrence: None)
  Receive Date: 20050617
  Receipt Date: 20050617
  Transmission Date: 20051028
  Serious: No
  Sender: FDA-Public Use
  Company Number: None

PATIENT

DRUGS (1)
  1. DILANTIN [Suspect]
     Indication: GRAND MAL CONVULSION
     Dosage: 100 MG CAP. 1 IN AM, 1 IN AFTERNOON, 2 AT BEDTIME (DURATION: INDEFINITE)

REACTIONS (2)
  - CONVULSION [None]
  - PHARMACEUTICAL PRODUCT COMPLAINT [None]
